FAERS Safety Report 9336614 (Version 2)
Quarter: 2013Q2

REPORT INFORMATION
  Report Type: Spontaneous
  Country: US (occurrence: US)
  Receive Date: 20130607
  Receipt Date: 20130620
  Transmission Date: 20140414
  Serious: No
  Sender: FDA-Public Use
  Company Number: US-PFIZER INC-2013170854

PATIENT
  Age: 68 Year
  Sex: Female

DRUGS (15)
  1. XELJANZ [Suspect]
     Indication: RHEUMATOID ARTHRITIS
     Dosage: 5 MG, 1 TABLET, 2X/DAY
     Route: 048
  2. CYMBALTA [Concomitant]
     Dosage: 60 MG, UNK
  3. PROTONIX [Concomitant]
     Dosage: 40 MG, UNK
  4. AMBIEN [Concomitant]
     Dosage: 12.5 MG, UNK
  5. CELEBREX [Concomitant]
     Dosage: 200 MG, UNK
  6. PREMARIN [Concomitant]
     Dosage: 0.625 MG, UNK
  7. FUROSEMIDE [Concomitant]
     Dosage: 20 MG, UNK
  8. LYRICA [Concomitant]
     Dosage: 75 MG, UNK
  9. SIMVASTATIN [Concomitant]
     Dosage: 40 MG, UNK
  10. LISINOPRIL [Concomitant]
     Dosage: 10 MG, UNK
  11. LEVOTHYROXINE [Concomitant]
     Dosage: 50 UG, UNK
  12. VERAPAMIL - SLOW RELEASE [Concomitant]
     Dosage: 180 MG, UNK
  13. MORPHINE SULFATE [Concomitant]
     Dosage: 15 MG, UNK
  14. VITAMIN D [Concomitant]
     Dosage: 1000 IU, UNK
  15. ALPRAZOLAM [Concomitant]
     Dosage: 1 MG, UNK

REACTIONS (3)
  - Pain [Unknown]
  - Headache [Unknown]
  - Pyrexia [Unknown]
